FAERS Safety Report 17008808 (Version 1)
Quarter: 2019Q4

REPORT INFORMATION
  Report Type: Spontaneous
  Country: US (occurrence: US)
  Receive Date: 20191108
  Receipt Date: 20191108
  Transmission Date: 20200122
  Serious: Yes (Life-Threatening, Other)
  Sender: FDA-Public Use
  Company Number: US-ENDO PHARMACEUTICALS INC-2019-109300

PATIENT
  Age: 19 Year
  Sex: Male

DRUGS (2)
  1. DANTROLENE SODIUM. [Suspect]
     Active Substance: DANTROLENE SODIUM
     Indication: MUSCLE SPASMS
     Dosage: 150 MG, BID FOR TWO DAYS
     Route: 065
     Dates: start: 20190707, end: 20190709
  2. DANTROLENE SODIUM. [Suspect]
     Active Substance: DANTROLENE SODIUM
     Dosage: 50 MG, BID
     Route: 065

REACTIONS (3)
  - Hepatic failure [Not Recovered/Not Resolved]
  - Overdose [Recovered/Resolved]
  - Renal failure [Not Recovered/Not Resolved]

NARRATIVE: CASE EVENT DATE: 2019
